FAERS Safety Report 4313613-2 (Version None)
Quarter: 2004Q1

REPORT INFORMATION
  Report Type: 
  Country: None (occurrence: None)
  Receive Date: 20040305
  Receipt Date: 20040224
  Transmission Date: 20041129
  Serious: Yes (Death)
  Sender: FDA-Public Use
  Company Number: 163-20785-03120261

PATIENT
  Age: 56 Year
  Sex: Male

DRUGS (1)
  1. THALOMIDE (THALIDOMIDE) (50 MILLIGRAMS, CAPSULES) [Suspect]
     Indication: MULTIPLE MYELOMA
     Dosage: 350 MG, DAILY, ORAL
     Route: 048
     Dates: start: 20030418, end: 20030718

REACTIONS (2)
  - MENINGITIS [None]
  - PSEUDOMONAS INFECTION [None]
